FAERS Safety Report 11393993 (Version 1)
Quarter: 2015Q3

REPORT INFORMATION
  Report Type: Report from Study
  Country: GB (occurrence: GB)
  Receive Date: 20150819
  Receipt Date: 20150819
  Transmission Date: 20151125
  Serious: Yes (Hospitalization)
  Sender: FDA-Public Use
  Company Number: GB-ACCORD-033021

PATIENT
  Age: 15 Year
  Sex: Female

DRUGS (4)
  1. MABTHERA [Suspect]
     Active Substance: RITUXIMAB
     Indication: B-CELL LYMPHOMA
     Route: 042
     Dates: start: 20150629, end: 20150629
  2. ETOPOSIDE. [Suspect]
     Active Substance: ETOPOSIDE
     Indication: B-CELL LYMPHOMA
     Dosage: CUMULATIVE DOSE BEFORE EVENT ONSET OF 440 MG
     Route: 042
     Dates: start: 20150629, end: 20150702
  3. DOXORUBICIN [Suspect]
     Active Substance: DOXORUBICIN
     Indication: B-CELL LYMPHOMA
     Dosage: CUMULATIVE DOSE BEFORE EVENT ONSET OF  84 MG
     Route: 042
     Dates: start: 20150629, end: 20150702
  4. VINCRISTINE [Suspect]
     Active Substance: VINCRISTINE
     Indication: B-CELL LYMPHOMA
     Dosage: CUMULATIVE DOSE BEFORE EVENT ONSET OF 3.2 MG
     Route: 042
     Dates: start: 20150629, end: 20150702

REACTIONS (4)
  - Febrile neutropenia [Recovered/Resolved]
  - Anaemia [Recovered/Resolved]
  - Sepsis [Recovered/Resolved]
  - Off label use [Unknown]

NARRATIVE: CASE EVENT DATE: 20150709
